FAERS Safety Report 19881989 (Version 1)
Quarter: 2021Q3

REPORT INFORMATION
  Report Type: Spontaneous
  Country: CA (occurrence: CA)
  Receive Date: 20210924
  Receipt Date: 20210924
  Transmission Date: 20211014
  Serious: Yes (Other)
  Sender: FDA-Public Use
  Company Number: CA-PFIZER INC-2015090741

PATIENT
  Age: 13 Year
  Sex: Female
  Weight: 36 kg

DRUGS (10)
  1. PREDNISONE. [Suspect]
     Active Substance: PREDNISONE
     Indication: IMMUNOSUPPRESSION
  2. RITUXAN [Suspect]
     Active Substance: RITUXIMAB
     Indication: IMMUNOSUPPRESSION
     Dosage: 2 DF, SINGLE
     Route: 042
  3. STEROIDS NOS [Concomitant]
     Active Substance: UNSPECIFIED INGREDIENT
  4. IMMUNE GLOBULIN [Concomitant]
     Route: 042
  5. CYTOGAM [Suspect]
     Active Substance: HUMAN CYTOMEGALOVIRUS IMMUNE GLOBULIN
     Indication: IMMUNOSUPPRESSION
     Dosage: UNK
     Route: 042
  6. SOLIRIS [Suspect]
     Active Substance: ECULIZUMAB
     Dosage: 600 MG, SINGLE
     Route: 042
  7. TACROLIMUS. [Suspect]
     Active Substance: TACROLIMUS
     Indication: IMMUNOSUPPRESSION
     Dosage: UNK, 2X/DAY
     Route: 048
  8. ANTILYMPHOCYTE IMMUNOGLOBULINS [Suspect]
     Active Substance: THYMOCYTE IMMUNE GLOBULIN NOS
     Indication: IMMUNOSUPPRESSION
     Dosage: 12 MG/KG
  9. SOLIRIS [Suspect]
     Active Substance: ECULIZUMAB
     Indication: TRANSPLANT REJECTION
     Dosage: 900 MG, SINGLE
     Route: 042
  10. MYCOPHENOLATE MOFETIL. [Suspect]
     Active Substance: MYCOPHENOLATE MOFETIL
     Indication: IMMUNOSUPPRESSION
     Dosage: UNK, 2X/DAY

REACTIONS (2)
  - Polyomavirus-associated nephropathy [Unknown]
  - Renal transplant failure [Unknown]
